FAERS Safety Report 9449356 (Version 3)
Quarter: 2013Q4

REPORT INFORMATION
  Report Type: Spontaneous
  Country: US (occurrence: US)
  Receive Date: 20130808
  Receipt Date: 20131016
  Transmission Date: 20140711
  Serious: No
  Sender: FDA-Public Use
  Company Number: US-009507513-1307USA017290

PATIENT
  Age: 31 Year
  Sex: Male
  Weight: 108.84 kg

DRUGS (2)
  1. PEGINTRON [Suspect]
     Indication: HEPATITIS C
     Dosage: 64 MICROGRAM, QW, REDIPEN
     Route: 058
     Dates: start: 20130719
  2. REBETOL [Suspect]
     Indication: HEPATITIS C
     Dosage: 400 MG, BID
     Route: 048
     Dates: start: 20130719

REACTIONS (5)
  - Insomnia [Recovering/Resolving]
  - Anxiety [Recovering/Resolving]
  - Nausea [Unknown]
  - Anger [Unknown]
  - Mood swings [Unknown]
